FAERS Safety Report 25614007 (Version 2)
Quarter: 2025Q3

REPORT INFORMATION
  Report Type: Report from Study
  Country: US (occurrence: US)
  Receive Date: 20250728
  Receipt Date: 20250915
  Transmission Date: 20251020
  Serious: Yes (Other)
  Sender: ABBVIE
  Company Number: US-ABBVIE-6388422

PATIENT
  Sex: Female

DRUGS (1)
  1. RINVOQ [Suspect]
     Active Substance: UPADACITINIB
     Indication: Granuloma annulare
     Route: 048

REACTIONS (4)
  - Renal failure [Unknown]
  - Low density lipoprotein increased [Unknown]
  - Glomerular filtration rate decreased [Unknown]
  - Urinary incontinence [Unknown]
